FAERS Safety Report 20139611 (Version 1)
Quarter: 2021Q4

REPORT INFORMATION
  Report Type: Spontaneous
  Country: US (occurrence: US)
  Receive Date: 20211202
  Receipt Date: 20211202
  Transmission Date: 20220303
  Serious: Yes (Life-Threatening, Hospitalization)
  Sender: FDA-Public Use
  Company Number: US-MYLANLABS-2021M1089038

PATIENT
  Age: 47 Year
  Sex: Male

DRUGS (2)
  1. CIPROFLOXACIN [Suspect]
     Active Substance: CIPROFLOXACIN
     Indication: Klebsiella infection
     Dosage: UNK
     Route: 065
  2. CIPROFLOXACIN [Suspect]
     Active Substance: CIPROFLOXACIN
     Indication: Providencia infection

REACTIONS (6)
  - Hyperfibrinolysis [Not Recovered/Not Resolved]
  - Haematoma [Unknown]
  - Peritoneal haematoma [Unknown]
  - Anaemia [Unknown]
  - Hepatotoxicity [Not Recovered/Not Resolved]
  - Muscle rupture [Unknown]
